FAERS Safety Report 16089742 (Version 1)
Quarter: 2019Q1

REPORT INFORMATION
  Report Type: Spontaneous
  Country: US (occurrence: US)
  Receive Date: 20190215
  Receipt Date: 20190215
  Transmission Date: 20190418
  Serious: No
  Sender: FDA-Public Use
  Company Number: None

PATIENT
  Age: 43 Year
  Sex: Male

DRUGS (1)
  1. ALECENSA [Suspect]
     Active Substance: ALECTINIB HYDROCHLORIDE
     Indication: NON-SMALL CELL LUNG CANCER
     Route: 048
     Dates: start: 20190118, end: 20190213

REACTIONS (9)
  - Dyspnoea [None]
  - Dysphonia [None]
  - Back pain [None]
  - Cough [None]
  - Chest pain [None]
  - Haemoptysis [None]
  - Oedema peripheral [None]
  - Drug ineffective [None]
  - Musculoskeletal pain [None]

NARRATIVE: CASE EVENT DATE: 20190212
